FAERS Safety Report 9158449 (Version 1)
Quarter: 2013Q1

REPORT INFORMATION
  Report Type: Spontaneous
  Country: US (occurrence: US)
  Receive Date: 20130312
  Receipt Date: 20130312
  Transmission Date: 20140127
  Serious: Yes (Death, Other)
  Sender: FDA-Public Use
  Company Number: US-TEVA-391103USA

PATIENT
  Sex: 0
  Weight: 75 kg

DRUGS (6)
  1. TREANDA [Suspect]
     Route: 042
  2. ALLOPURINOL [Concomitant]
     Indication: B-CELL LYMPHOMA
  3. SYNTHROID [Concomitant]
     Indication: HYPOTHYROIDISM
  4. LORAZEPAM [Concomitant]
  5. ASPIRIN [Concomitant]
  6. ANTIHYPERTENSIVE MEDICATION [Concomitant]
     Indication: HYPERTENSION

REACTIONS (1)
  - Toxic epidermal necrolysis [Fatal]
